FAERS Safety Report 12326134 (Version 1)
Quarter: 2016Q2

REPORT INFORMATION
  Report Type: Spontaneous
  Country: US (occurrence: None)
  Receive Date: 20160502
  Receipt Date: 20160502
  Transmission Date: 20160815
  Serious: No
  Sender: FDA-Public Use
  Company Number: None

PATIENT
  Age: 47 Year
  Sex: Female

DRUGS (1)
  1. ICY HOT MEDICATED NO MESS APPLICATOR [Suspect]
     Active Substance: MENTHOL
     Indication: PAIN
     Dosage: APPLIED TO A SURFACE,  USUALLY THE SKIN
     Dates: start: 20160423, end: 20160427

REACTIONS (4)
  - Application site burn [None]
  - Application site exfoliation [None]
  - Application site scab [None]
  - Pain [None]

NARRATIVE: CASE EVENT DATE: 20160424
